FAERS Safety Report 21879559 (Version 1)
Quarter: 2023Q1

REPORT INFORMATION
  Report Type: Other
  Country: US (occurrence: US)
  Receive Date: 20230118
  Receipt Date: 20230118
  Transmission Date: 20230417
  Serious: No
  Sender: FDA-Public Use
  Company Number: US-UROVANT SCIENCES GMBH-202209-URV-001316

PATIENT
  Sex: Male
  Weight: 127.89 kg

DRUGS (1)
  1. GEMTESA [Suspect]
     Active Substance: VIBEGRON
     Indication: Hypertonic bladder
     Dosage: 75 MG, QD
     Route: 048
     Dates: start: 202208

REACTIONS (3)
  - Therapeutic product effect incomplete [Unknown]
  - Product availability issue [Unknown]
  - Inability to afford medication [Unknown]
